FAERS Safety Report 15525535 (Version 1)
Quarter: 2018Q4

REPORT INFORMATION
  Report Type: Report from Study
  Country: JP (occurrence: JP)
  Receive Date: 20181018
  Receipt Date: 20181018
  Transmission Date: 20190205
  Serious: Yes (Hospitalization, Other)
  Sender: FDA-Public Use
  Company Number: JP-ROCHE-2197169

PATIENT

DRUGS (3)
  1. TOCILIZUMAB. [Suspect]
     Active Substance: TOCILIZUMAB
     Indication: STILL^S DISEASE
     Route: 042
  2. PREDNISOLONE. [Concomitant]
     Active Substance: PREDNISOLONE
     Dosage: 30 MG/DAY WERE TAPERED BY 5-10 MG/ DAY EVERY WEEK, 15-29 MG/DAY PREDNISOLONE BY 2.5-5 MG/DAY EVERY 2
     Route: 065
  3. TOCILIZUMAB. [Suspect]
     Active Substance: TOCILIZUMAB
     Indication: STILL^S DISEASE
     Route: 042

REACTIONS (7)
  - Still^s disease [Unknown]
  - Subcutaneous abscess [Unknown]
  - Anaphylactic shock [Unknown]
  - Osteonecrosis [Unknown]
  - Cellulitis [Unknown]
  - Splenic abscess [Unknown]
  - Pneumonia [Unknown]
